FAERS Safety Report 23448151 (Version 3)
Quarter: 2024Q1

REPORT INFORMATION
  Report Type: Other
  Country: US (occurrence: US)
  Receive Date: 20240126
  Receipt Date: 20240305
  Transmission Date: 20240410
  Serious: Yes (Hospitalization)
  Sender: FDA-Public Use
  Company Number: US-TRAVERE-2023TVT00883

PATIENT
  Age: 60 Year
  Sex: Female

DRUGS (2)
  1. FILSPARI [Suspect]
     Active Substance: SPARSENTAN
     Indication: IgA nephropathy
     Dosage: 400 MG
     Route: 048
     Dates: start: 20231128
  2. FILSPARI [Suspect]
     Active Substance: SPARSENTAN
     Dosage: 200 MG
     Route: 048

REACTIONS (3)
  - Blood pressure fluctuation [Recovered/Resolved]
  - Product dose omission issue [Unknown]
  - Extra dose administered [Unknown]

NARRATIVE: CASE EVENT DATE: 20231201
